FAERS Safety Report 4861879-2 (Version None)
Quarter: 2005Q4

REPORT INFORMATION
  Report Type: 
  Country: None (occurrence: None)
  Receive Date: 20051130
  Receipt Date: 20050413
  Transmission Date: 20060501
  Serious: Yes (Other)
  Sender: FDA-Public Use
  Company Number: 200510691BWH

PATIENT
  Age: 67 Year
  Sex: Female
  Weight: 48.0813 kg

DRUGS (11)
  1. CIPRO [Suspect]
     Indication: URINARY TRACT INFECTION
     Dosage: SEE IMAGE
     Route: 048
     Dates: start: 20050315, end: 20050316
  2. CIPRO [Suspect]
     Indication: URINARY TRACT INFECTION
     Dosage: SEE IMAGE
     Route: 048
     Dates: start: 20050316, end: 20050317
  3. CIPRO [Suspect]
     Indication: URINARY TRACT INFECTION
     Dosage: SEE IMAGE
     Route: 048
     Dates: start: 20050317, end: 20050318
  4. KEPPRA [Suspect]
     Indication: PETIT MAL EPILEPSY
     Dosage: SEE IMAGE
     Route: 048
     Dates: start: 20050101
  5. KEPPRA [Suspect]
     Indication: PETIT MAL EPILEPSY
     Dosage: SEE IMAGE
     Route: 048
     Dates: start: 20050101
  6. KEPPRA [Suspect]
     Indication: PETIT MAL EPILEPSY
     Dosage: SEE IMAGE
     Route: 048
     Dates: start: 20050101
  7. KEPPRA [Suspect]
     Indication: PETIT MAL EPILEPSY
     Dosage: SEE IMAGE
     Route: 048
     Dates: start: 20050101
  8. KEPPRA [Suspect]
     Indication: PETIT MAL EPILEPSY
     Dosage: SEE IMAGE
     Route: 048
     Dates: start: 20050320
  9. FOSAMAX [Suspect]
     Indication: OSTEOPENIA
     Dosage: 35 MG, OW, ORAL
     Route: 048
  10. CARBATROL [Concomitant]
  11. XANAX [Concomitant]

REACTIONS (1)
  - PETIT MAL EPILEPSY [None]
